FAERS Safety Report 8446922-6 (Version None)
Quarter: 2012Q2

REPORT INFORMATION
  Report Type: 
  Country: None (occurrence: None)
  Receive Date: 20120613
  Receipt Date: 20120613
  Transmission Date: 20120825
  Serious: Yes (Disabling)
  Sender: FDA-Public Use
  Company Number: None

PATIENT
  Age: 41 Year
  Sex: Female
  Weight: 67.1324 kg

DRUGS (1)
  1. LAMOTRIGINE [Suspect]
     Indication: MIGRAINE PROPHYLAXIS
     Dosage: 100 MG, BID, PO
     Route: 048
     Dates: start: 20100101, end: 20120101

REACTIONS (4)
  - HYPERACUSIS [None]
  - TINNITUS [None]
  - ILL-DEFINED DISORDER [None]
  - PAIN [None]
